FAERS Safety Report 25923978 (Version 2)
Quarter: 2025Q4

REPORT INFORMATION
  Report Type: Spontaneous
  Country: EU (occurrence: EU)
  Receive Date: 20251015
  Receipt Date: 20251118
  Transmission Date: 20260117
  Serious: No
  Sender: MYLAN
  Company Number: EU-MYLANLABS-2025M1086862

PATIENT
  Sex: Female

DRUGS (1)
  1. PROPRANOLOL [Suspect]
     Active Substance: PROPRANOLOL HYDROCHLORIDE
     Indication: Lymphatic disorder
     Dosage: UNK

REACTIONS (1)
  - No adverse event [Recovered/Resolved]
